FAERS Safety Report 12382399 (Version 2)
Quarter: 2016Q2

REPORT INFORMATION
  Report Type: Spontaneous
  Country: GB (occurrence: GB)
  Receive Date: 20160518
  Receipt Date: 20160622
  Transmission Date: 20160815
  Serious: Yes (Other)
  Sender: FDA-Public Use
  Company Number: GB-ROCHE-1758923

PATIENT
  Age: 39 Year

DRUGS (4)
  1. HERCEPTIN [Suspect]
     Active Substance: TRASTUZUMAB
     Indication: BRAIN CANCER METASTATIC
     Route: 065
  2. VINORELBINE [Concomitant]
     Active Substance: VINORELBINE\VINORELBINE TARTRATE
  3. KADCYLA [Suspect]
     Active Substance: ADO-TRASTUZUMAB EMTANSINE
     Indication: BRAIN CANCER METASTATIC
     Route: 065
  4. ABRAXANE [Concomitant]
     Active Substance: PACLITAXEL

REACTIONS (6)
  - Metastases to central nervous system [Unknown]
  - Hepatic steatosis [Unknown]
  - Dyspnoea [Unknown]
  - Influenza [Unknown]
  - Ejection fraction decreased [Unknown]
  - Hepatotoxicity [Unknown]
